FAERS Safety Report 6942668-1 (Version None)
Quarter: 2010Q3

REPORT INFORMATION
  Report Type: 
  Country: None (occurrence: None)
  Receive Date: 20100826
  Receipt Date: 20100812
  Transmission Date: 20110219
  Serious: Yes (Other)
  Sender: FDA-Public Use
  Company Number: PHHY2010US51383

PATIENT
  Sex: Female

DRUGS (11)
  1. RECLAST [Suspect]
     Indication: OSTEOPOROSIS
     Dosage: 5 MG PER YEAR
     Route: 042
     Dates: start: 20100517
  2. SYNTHROID [Concomitant]
     Indication: HYPOTHYROIDISM
     Dosage: 75 MCG DAILY
     Route: 048
  3. GABAPENTIN [Concomitant]
     Dosage: 300 MG, TID
  4. CELEBREX [Concomitant]
     Dosage: 10 MG, QD
  5. NIACIN [Concomitant]
     Dosage: 500 MG
  6. CALCIUM [Concomitant]
     Dosage: 600 MG, BID
  7. VITAMIN D [Concomitant]
     Dosage: UNK
  8. SIMVASTATIN [Concomitant]
     Indication: DYSLIPIDAEMIA
     Dosage: 40 MG, QD
     Route: 048
     Dates: start: 20090714
  9. CELEXA [Concomitant]
     Indication: OSTEOARTHRITIS
     Dosage: 200 MG, QD
     Route: 048
  10. VITAMINS [Concomitant]
  11. NIACIN [Concomitant]

REACTIONS (4)
  - ANKLE FRACTURE [None]
  - DRUG INEFFECTIVE [None]
  - FIBULA FRACTURE [None]
  - SURGERY [None]
